FAERS Safety Report 9056701 (Version 2)
Quarter: 2013Q1

REPORT INFORMATION
  Report Type: Spontaneous
  Country: US (occurrence: US)
  Receive Date: 20130204
  Receipt Date: 20130305
  Transmission Date: 20140127
  Serious: No
  Sender: FDA-Public Use
  Company Number: US-AMGEN-USASP2013002474

PATIENT
  Age: 49 Year
  Sex: Male
  Weight: 68.03 kg

DRUGS (2)
  1. ENBREL [Suspect]
     Indication: ANKYLOSING SPONDYLITIS
     Dosage: 50 MG, QWK
     Dates: start: 20060301
  2. SEROQUEL [Concomitant]
     Dosage: 300 MG, TWICE A DAY, TOOK FOR ONE YEAR

REACTIONS (12)
  - Pyrexia [Recovered/Resolved]
  - Sinus congestion [Recovered/Resolved]
  - Nausea [Recovered/Resolved]
  - Vomiting [Not Recovered/Not Resolved]
  - Diarrhoea [Recovered/Resolved]
  - Local swelling [Not Recovered/Not Resolved]
  - Tremor [Recovered/Resolved]
  - Hypertension [Not Recovered/Not Resolved]
  - Dry mouth [Not Recovered/Not Resolved]
  - Delirium [Recovered/Resolved]
  - Sneezing [Not Recovered/Not Resolved]
  - Injection site pain [Recovered/Resolved]
